FAERS Safety Report 5975990-6 (Version None)
Quarter: 2008Q4

REPORT INFORMATION
  Report Type: 
  Country: None (occurrence: None)
  Receive Date: 20081202
  Receipt Date: 20081124
  Transmission Date: 20090506
  Serious: Yes (Hospitalization)
  Sender: FDA-Public Use
  Company Number: BE-JNJFOC-20081106011

PATIENT
  Age: 49 Year
  Sex: Female

DRUGS (2)
  1. INFLIXIMAB [Suspect]
     Dosage: THERAPY DURATION OF 3 YEARS AND 3 MONTHS
     Route: 042
  2. INFLIXIMAB [Suspect]
     Indication: RHEUMATOID ARTHRITIS
     Route: 042

REACTIONS (1)
  - SARCOIDOSIS [None]
